FAERS Safety Report 7521470-6 (Version None)
Quarter: 2011Q2

REPORT INFORMATION
  Report Type: 
  Country: None (occurrence: None)
  Receive Date: 20110603
  Receipt Date: 20101210
  Transmission Date: 20111010
  Serious: Yes (Other)
  Sender: FDA-Public Use
  Company Number: JP-BAYER-2010-000052

PATIENT
  Age: 62 Year
  Sex: Male

DRUGS (1)
  1. AVELOX [Suspect]
     Indication: OTITIS EXTERNA
     Dosage: 400 MG, QD
     Route: 048
     Dates: start: 20101118, end: 20101124

REACTIONS (1)
  - TOXIC EPIDERMAL NECROLYSIS [None]
